FAERS Safety Report 14111075 (Version 1)
Quarter: 2017Q4

REPORT INFORMATION
  Report Type: Spontaneous
  Country: FR (occurrence: FR)
  Receive Date: 20171020
  Receipt Date: 20171020
  Transmission Date: 20180321
  Serious: Yes (Hospitalization)
  Sender: FDA-Public Use
  Company Number: FR-PFIZER INC-2017446685

PATIENT
  Age: 34 Year
  Sex: Female

DRUGS (3)
  1. STILNOX [Suspect]
     Active Substance: ZOLPIDEM TARTRATE
     Dosage: 14 DF (14 TABLET-BOX), DAILY AT LEAST
     Route: 048
  2. XANAX [Suspect]
     Active Substance: ALPRAZOLAM
     Dosage: 1 BOX (14 TABLET-BOX), DAILY, AT LEAST
     Route: 048
  3. SEROPLEX [Concomitant]
     Active Substance: ESCITALOPRAM OXALATE
     Dosage: UNK

REACTIONS (8)
  - Anxiety [Unknown]
  - Overdose [Unknown]
  - Tension [Unknown]
  - Reduced facial expression [Unknown]
  - Seizure [Unknown]
  - Speech disorder [Unknown]
  - Drug use disorder [Unknown]
  - Drug withdrawal syndrome [Unknown]
